FAERS Safety Report 21598927 (Version 2)
Quarter: 2022Q4

REPORT INFORMATION
  Report Type: Spontaneous
  Country: US (occurrence: US)
  Receive Date: 20221115
  Receipt Date: 20221215
  Transmission Date: 20230113
  Serious: No
  Sender: FDA-Public Use
  Company Number: US-SA-SAC20221114000545

PATIENT
  Age: 54 Year
  Sex: Female

DRUGS (21)
  1. DUPIXENT [Suspect]
     Active Substance: DUPILUMAB
     Indication: Dermatitis atopic
     Dosage: 300 MG, QOW
     Route: 058
  2. LEXETTE [Concomitant]
     Active Substance: HALOBETASOL PROPIONATE
  3. POTASSIUM [Concomitant]
     Active Substance: POTASSIUM
  4. VITAMIN C [Concomitant]
     Active Substance: ASCORBIC ACID
  5. ZINC [Concomitant]
     Active Substance: ZINC
  6. IBU [Concomitant]
     Active Substance: IBUPROFEN
  7. CLONAZEPAM [Concomitant]
     Active Substance: CLONAZEPAM
  8. ATROPINE\DIPHENOXYLATE [Concomitant]
     Active Substance: ATROPINE\DIPHENOXYLATE
  9. MONTELUKAST SODIUM [Concomitant]
     Active Substance: MONTELUKAST SODIUM
  10. ZYRTEC [Concomitant]
     Active Substance: CETIRIZINE HYDROCHLORIDE
  11. ACZONE [Concomitant]
     Active Substance: DAPSONE
  12. OPZELURA [Concomitant]
     Active Substance: RUXOLITINIB PHOSPHATE
  13. ZILXI [Concomitant]
     Active Substance: MINOCYCLINE HYDROCHLORIDE
  14. CLODERM [CLOCORTOLONE PIVALATE] [Concomitant]
  15. MIRVASO [Concomitant]
     Active Substance: BRIMONIDINE TARTRATE
  16. DOXYCYCLINE HYCLATE [Concomitant]
     Active Substance: DOXYCYCLINE HYCLATE
  17. AZELASTINE HYDROCHLORIDE\FLUTICASONE PROPIONATE [Concomitant]
     Active Substance: AZELASTINE HYDROCHLORIDE\FLUTICASONE PROPIONATE
  18. BIO OIL [Concomitant]
  19. CLINDAMYCIN HYDROCHLORIDE [Concomitant]
     Active Substance: CLINDAMYCIN HYDROCHLORIDE
  20. PROBI [Concomitant]
  21. DIGESTIVE ENZYMES [AMYLASE;CELLULASE;LIPASE;MALTASE;PROTEASE NOS;SUCRA [Concomitant]

REACTIONS (7)
  - Abnormal weight gain [Not Recovered/Not Resolved]
  - Breast enlargement [Unknown]
  - Hot flush [Not Recovered/Not Resolved]
  - Condition aggravated [Not Recovered/Not Resolved]
  - Dermatitis atopic [Recovering/Resolving]
  - Injection site pain [Unknown]
  - Incorrect route of product administration [Unknown]

NARRATIVE: CASE EVENT DATE: 20221121
